FAERS Safety Report 6076345-9 (Version None)
Quarter: 2009Q1

REPORT INFORMATION
  Report Type: 
  Country: None (occurrence: None)
  Receive Date: 20090209
  Receipt Date: 20090129
  Transmission Date: 20090719
  Serious: Yes (Other)
  Sender: FDA-Public Use
  Company Number: 2008AL006566

PATIENT
  Age: 52 Year
  Sex: Male

DRUGS (12)
  1. DIGOXIN [Suspect]
     Dosage: 0.25MG, DAILY, PO
     Route: 048
  2. PRAVACHOL [Concomitant]
  3. NAPROXEN [Concomitant]
  4. COZAAR [Concomitant]
  5. ASPIRIN [Concomitant]
  6. RANEXA [Concomitant]
  7. COREG [Concomitant]
  8. PRAVACHOL [Concomitant]
  9. IMDUR [Concomitant]
  10. LOPRESSOR [Concomitant]
  11. ACCUPRIL [Concomitant]
  12. NITROGLYCERIN [Concomitant]

REACTIONS (18)
  - ANGINA PECTORIS [None]
  - CARDIOACTIVE DRUG LEVEL DECREASED [None]
  - CONFUSIONAL STATE [None]
  - COUGH [None]
  - DIZZINESS [None]
  - EAR PAIN [None]
  - FEELING ABNORMAL [None]
  - HEADACHE [None]
  - HYPERHIDROSIS [None]
  - HYPOAESTHESIA [None]
  - INCREASED UPPER AIRWAY SECRETION [None]
  - INSOMNIA [None]
  - NAUSEA [None]
  - PARAESTHESIA [None]
  - PULMONARY CONGESTION [None]
  - PYREXIA [None]
  - SPUTUM DISCOLOURED [None]
  - VISION BLURRED [None]
